FAERS Safety Report 9344436 (Version 1)
Quarter: 2013Q2

REPORT INFORMATION
  Report Type: Spontaneous
  Country: FR (occurrence: FR)
  Receive Date: 20130612
  Receipt Date: 20130612
  Transmission Date: 20140414
  Serious: Yes (Hospitalization)
  Sender: FDA-Public Use
  Company Number: FR-ASTRAZENECA-2013SE41037

PATIENT
  Age: 86 Year
  Sex: Female

DRUGS (5)
  1. INEXIUM [Suspect]
     Route: 048
     Dates: end: 20130404
  2. KARDEGIC [Suspect]
     Route: 048
     Dates: end: 20130404
  3. LERCANIDIPINE [Concomitant]
     Route: 048
  4. TEMESTA [Concomitant]
     Route: 048
  5. DAFALGAN [Concomitant]
     Dosage: AS REQUIRED
     Route: 048

REACTIONS (2)
  - Lymphopenia [Recovered/Resolved]
  - Leukopenia [Recovered/Resolved]
